FAERS Safety Report 9914331 (Version 1)
Quarter: 2014Q1

REPORT INFORMATION
  Report Type: Spontaneous
  Country: US (occurrence: None)
  Receive Date: 20140219
  Receipt Date: 20140219
  Transmission Date: 20141002
  Serious: Yes (Other)
  Sender: FDA-Public Use
  Company Number: None

PATIENT
  Age: 37 Year
  Sex: Female

DRUGS (1)
  1. SUBOXONE [Suspect]
     Indication: DRUG DEPENDENCE
     Dosage: 1 1/2 TABLETS, TAKEN UNDER THE TONGUE
     Route: 060

REACTIONS (7)
  - Migraine [None]
  - Abdominal discomfort [None]
  - Pain in extremity [None]
  - Diarrhoea [None]
  - Chills [None]
  - Withdrawal syndrome [None]
  - Drug ineffective [None]
